FAERS Safety Report 5155221-X (Version None)
Quarter: 2006Q4

REPORT INFORMATION
  Report Type: 
  Country: None (occurrence: None)
  Receive Date: 20061121
  Receipt Date: 20061106
  Transmission Date: 20070319
  Serious: Yes (Other)
  Sender: FDA-Public Use
  Company Number: AU-GLAXOSMITHKLINE-B0445436A

PATIENT
  Age: 34 Year
  Sex: Male

DRUGS (2)
  1. NICABATE CQ 4MG LOZENGE [Suspect]
     Route: 002
     Dates: start: 20061023, end: 20061024
  2. NICABATE CQ 2MG LOZENGE [Suspect]
     Route: 002
     Dates: start: 20061023, end: 20061024

REACTIONS (11)
  - ABDOMINAL PAIN UPPER [None]
  - COLD SWEAT [None]
  - EPISTAXIS [None]
  - FEELING HOT [None]
  - FEELING JITTERY [None]
  - HEADACHE [None]
  - HOT FLUSH [None]
  - LOSS OF CONSCIOUSNESS [None]
  - NERVOUSNESS [None]
  - SYNCOPE [None]
  - VOMITING [None]
